FAERS Safety Report 6707950-1 (Version None)
Quarter: 2010Q2

REPORT INFORMATION
  Report Type: 
  Country: None (occurrence: None)
  Receive Date: 20100503
  Receipt Date: 20100422
  Transmission Date: 20101027
  Serious: Yes (Hospitalization, Other)
  Sender: FDA-Public Use
  Company Number: US-BAXTER-2010BH010025

PATIENT
  Age: 61 Year
  Sex: Male

DRUGS (3)
  1. DIANEAL [Suspect]
     Indication: PERITONEAL DIALYSIS
     Route: 033
     Dates: end: 20100405
  2. DIANEAL [Suspect]
     Indication: PERITONEAL DIALYSIS
     Route: 033
     Dates: start: 20100401
  3. DIANEAL [Suspect]
     Route: 033
     Dates: end: 20100401

REACTIONS (6)
  - BLOOD ALBUMIN DECREASED [None]
  - CELLULITIS [None]
  - FLUID OVERLOAD [None]
  - OEDEMA PERIPHERAL [None]
  - PROCEDURAL COMPLICATION [None]
  - WEIGHT INCREASED [None]
